FAERS Safety Report 9436000 (Version 1)
Quarter: 2013Q3

REPORT INFORMATION
  Report Type: Spontaneous
  Country: SG (occurrence: SG)
  Receive Date: 20130801
  Receipt Date: 20130801
  Transmission Date: 20140515
  Serious: Yes (Death, Other)
  Sender: FDA-Public Use
  Company Number: SG-MERCK-1307SGP016573

PATIENT
  Age: 56 Year
  Sex: Male

DRUGS (2)
  1. NOXAFIL [Suspect]
     Indication: ZYGOMYCOSIS
     Dosage: 200 MG, QDS
     Route: 048
     Dates: start: 20110922
  2. DEFERASIROX [Concomitant]
     Dosage: 20 MG/KG, QD
     Route: 042
     Dates: start: 20110922

REACTIONS (4)
  - Treatment failure [Fatal]
  - Coma [Fatal]
  - Skin lesion [Fatal]
  - Cardiac myxoma [Fatal]
